FAERS Safety Report 13521243 (Version 3)
Quarter: 2017Q2

REPORT INFORMATION
  Report Type: Spontaneous
  Country: US (occurrence: US)
  Receive Date: 20170508
  Receipt Date: 20170616
  Transmission Date: 20170830
  Serious: No
  Sender: FDA-Public Use
  Company Number: US-PFIZER INC-2017201244

PATIENT
  Age: 63 Year
  Sex: Female

DRUGS (6)
  1. EUCRISA [Suspect]
     Active Substance: CRISABOROLE
     Indication: DERMATITIS CONTACT
     Dosage: 2 %, 2X/DAY (BID)
     Route: 061
     Dates: start: 20170309, end: 20170517
  2. TRIAMTERENE AND HYDROCHLOROTHIAZID [Concomitant]
     Active Substance: HYDROCHLOROTHIAZIDE\TRIAMTERENE
     Indication: HYPERTENSION
     Dosage: UNK, [(HYDROCHLOROTHIAZIDE:37.5MG, TRIAMTERENE:25MG)]
  3. CETRIZINE [Concomitant]
     Active Substance: CETIRIZINE HYDROCHLORIDE
     Indication: URTICARIA
     Dosage: 10 MG, 1X/DAY
     Dates: start: 20170407
  4. CRESTOR [Concomitant]
     Active Substance: ROSUVASTATIN CALCIUM
     Indication: BLOOD CHOLESTEROL INCREASED
     Dosage: 40 MG, DAILY
  5. EUCRISA [Suspect]
     Active Substance: CRISABOROLE
     Indication: URTICARIA
  6. PEPCID [Concomitant]
     Active Substance: FAMOTIDINE
     Indication: URTICARIA
     Dosage: 20 MG, 1X/DAY
     Dates: start: 20170517

REACTIONS (3)
  - Drug hypersensitivity [Unknown]
  - Urticaria [Unknown]
  - Application site pain [Unknown]

NARRATIVE: CASE EVENT DATE: 20170517
